FAERS Safety Report 4619564-8 (Version None)
Quarter: 2005Q1

REPORT INFORMATION
  Report Type: 
  Country: None (occurrence: None)
  Receive Date: 20050325
  Receipt Date: 20050316
  Transmission Date: 20050727
  Serious: Yes (Hospitalization)
  Sender: FDA-Public Use
  Company Number: FR-BRISTOL-MYERS SQUIBB COMPANY-12903282

PATIENT
  Age: 80 Year
  Sex: Male
  Weight: 79 kg

DRUGS (4)
  1. AMIKLIN POWDER [Suspect]
     Indication: SEPSIS
     Route: 042
     Dates: start: 20050129, end: 20050203
  2. AXEPIM INJ 2 GM [Suspect]
     Indication: SEPSIS
     Route: 042
     Dates: start: 20050201, end: 20050203
  3. RIFADIN [Suspect]
     Indication: SEPSIS
     Route: 042
     Dates: start: 20050201, end: 20050203
  4. NIMBEX [Suspect]
     Indication: SEPSIS
     Route: 042
     Dates: start: 20050201, end: 20050203

REACTIONS (1)
  - HEPATITIS [None]
